FAERS Safety Report 21742849 (Version 1)
Quarter: 2022Q4

REPORT INFORMATION
  Report Type: Report from Study
  Country: US (occurrence: US)
  Receive Date: 20221217
  Receipt Date: 20221217
  Transmission Date: 20230113
  Serious: No
  Sender: FDA-Public Use
  Company Number: US-ABBVIE-4194701

PATIENT
  Sex: Female

DRUGS (1)
  1. RINVOQ [Suspect]
     Active Substance: UPADACITINIB
     Indication: Product used for unknown indication
     Dosage: 3 WEEKS GAP OF NOT TAKING MEDICATION
     Route: 048

REACTIONS (3)
  - Condition aggravated [Unknown]
  - Musculoskeletal stiffness [Unknown]
  - Arthropathy [Unknown]
